FAERS Safety Report 25027310 (Version 3)
Quarter: 2025Q4

REPORT INFORMATION
  Report Type: Spontaneous
  Country: US (occurrence: US)
  Receive Date: 20250301
  Receipt Date: 20251001
  Transmission Date: 20260117
  Serious: No
  Sender: SANOFI AVENTIS
  Company Number: US-SA-2025SA056266

PATIENT
  Age: 59 Year
  Sex: Female

DRUGS (2)
  1. DUPIXENT [Suspect]
     Active Substance: DUPILUMAB
     Indication: Chronic obstructive pulmonary disease
     Dosage: 600 MG, 1X
     Route: 058
     Dates: start: 20250106, end: 20250106
  2. DUPIXENT [Suspect]
     Active Substance: DUPILUMAB
     Dosage: 300 MG, QOW
     Route: 058
     Dates: start: 202501

REACTIONS (6)
  - Respiratory tract infection [Unknown]
  - Anxiety [Unknown]
  - Depression [Unknown]
  - Back pain [Recovering/Resolving]
  - Chronic obstructive pulmonary disease [Recovered/Resolved]
  - Oxygen therapy [Unknown]

NARRATIVE: CASE EVENT DATE: 20250101
